FAERS Safety Report 5906072-7 (Version None)
Quarter: 2008Q4

REPORT INFORMATION
  Report Type: 
  Country: None (occurrence: None)
  Receive Date: 20081002
  Receipt Date: 20080923
  Transmission Date: 20090506
  Serious: Yes (Other)
  Sender: FDA-Public Use
  Company Number: PHHY2008GB20291

PATIENT
  Sex: Male

DRUGS (5)
  1. CLOZARIL [Suspect]
     Indication: SCHIZOPHRENIA
     Dosage: 300 MG MANE, 350 MG NOCTE
     Route: 048
     Dates: start: 20080820, end: 20080831
  2. QUETIAPINE FUMARATE [Concomitant]
     Dosage: 300 MG, BID
     Route: 048
     Dates: start: 20080829, end: 20080831
  3. PROPRANOLOL [Concomitant]
     Dosage: 40 MG, BID
     Route: 048
  4. LANSOPRAZOLE [Concomitant]
     Dosage: 30 MG, ONCE/SINGLE
     Route: 048
  5. PROCYCLIDINE HYDROCHLORIDE 2MG TAB [Concomitant]
     Dosage: 10 MG, BID
     Route: 048

REACTIONS (7)
  - ANXIETY [None]
  - BLOOD PRESSURE FLUCTUATION [None]
  - DRUG ABUSE [None]
  - GASTRIC DISORDER [None]
  - HEART RATE IRREGULAR [None]
  - MUSCULOSKELETAL CHEST PAIN [None]
  - SINUS TACHYCARDIA [None]
